FAERS Safety Report 7239551-3 (Version None)
Quarter: 2011Q1

REPORT INFORMATION
  Report Type: 
  Country: None (occurrence: None)
  Receive Date: 20110121
  Receipt Date: 20100127
  Transmission Date: 20110831
  Serious: No
  Sender: FDA-Public Use
  Company Number: US-PFIZER INC-2009314305

PATIENT
  Sex: Female
  Weight: 133 kg

DRUGS (4)
  1. CLONIDINE [Concomitant]
     Indication: BLOOD PRESSURE ABNORMAL
     Dosage: UNK
     Route: 048
  2. XANAX [Concomitant]
     Indication: STRESS
     Dosage: 0.5 MG, UNK
     Route: 048
  3. NIFEDIPINE [Suspect]
     Indication: HYPERTENSION
     Dosage: 60 MG, 1X/DAY
     Route: 048
     Dates: start: 20060101, end: 20091218
  4. NIFEDIPINE [Suspect]
     Dosage: UNK
     Dates: start: 20091222

REACTIONS (4)
  - HEADACHE [None]
  - TREMOR [None]
  - MEDICATION ERROR [None]
  - CHEST DISCOMFORT [None]
